FAERS Safety Report 6457701-3 (Version None)
Quarter: 2009Q4

REPORT INFORMATION
  Report Type: 
  Country: None (occurrence: None)
  Receive Date: 20091125
  Receipt Date: 20091113
  Transmission Date: 20100525
  Serious: Yes (Hospitalization)
  Sender: FDA-Public Use
  Company Number: PL-GENENTECH-293450

PATIENT
  Sex: Male

DRUGS (9)
  1. BEVACIZUMAB [Suspect]
     Indication: RENAL CELL CARCINOMA
     Dosage: UNK
     Route: 042
     Dates: start: 20090727, end: 20091026
  2. TEMSIROLIMUS [Suspect]
     Indication: RENAL CELL CARCINOMA
     Dosage: UNK
     Route: 042
     Dates: start: 20090727, end: 20091026
  3. RANITIDINE [Concomitant]
     Indication: PEPTIC ULCER
     Dosage: UNK
     Dates: start: 20091023, end: 20091031
  4. COCARBOXYLASE [Concomitant]
     Indication: FIBRIN D DIMER INCREASED
     Dosage: UNK
     Dates: start: 20091023, end: 20091103
  5. HEPARIN SODIUM [Concomitant]
     Indication: FIBRIN D DIMER INCREASED
     Dosage: UNK
     Dates: start: 20091023, end: 20091103
  6. GLUCOSE [Concomitant]
     Indication: DRUG USE FOR UNKNOWN INDICATION
     Dosage: UNK
     Dates: start: 20091023, end: 20091031
  7. ELECTROLYTES [Concomitant]
     Indication: DRUG USE FOR UNKNOWN INDICATION
     Dosage: UNK
     Dates: start: 20091023, end: 20091103
  8. SODIUM CHLORIDE [Concomitant]
     Indication: DRUG USE FOR UNKNOWN INDICATION
     Dosage: UNK
     Dates: start: 20091023, end: 20091031
  9. FUROSEMIDE [Concomitant]
     Indication: DRUG USE FOR UNKNOWN INDICATION
     Dosage: UNK
     Dates: start: 20091023, end: 20091103

REACTIONS (2)
  - MUCOSAL INFLAMMATION [None]
  - RENAL FAILURE [None]
